FAERS Safety Report 16583811 (Version 1)
Quarter: 2019Q3

REPORT INFORMATION
  Report Type: Spontaneous
  Country: US (occurrence: US)
  Receive Date: 20190604
  Receipt Date: 20190604
  Transmission Date: 20191004
  Serious: No
  Sender: FDA-Public Use
  Company Number: None

PATIENT
  Sex: Female

DRUGS (1)
  1. OFLOXACIN OTIC [Suspect]
     Active Substance: OFLOXACIN

REACTIONS (6)
  - Incorrect product dosage form administered [None]
  - Eye irritation [None]
  - Product prescribing issue [None]
  - Vitreous floaters [None]
  - Visual impairment [None]
  - Product dispensing error [None]
